FAERS Safety Report 24988819 (Version 1)
Quarter: 2025Q1

REPORT INFORMATION
  Report Type: Report from Study
  Country: US (occurrence: US)
  Receive Date: 20250220
  Receipt Date: 20250220
  Transmission Date: 20250409
  Serious: No
  Sender: DECIPHERA PHARMACEUTICALS
  Company Number: US-DECIPHERA PHARMACEUTICALS LLC-2025US000108

PATIENT
  Age: 84 Year
  Sex: Male

DRUGS (2)
  1. QINLOCK [Suspect]
     Active Substance: RIPRETINIB
     Indication: Gastrointestinal stromal tumour
     Dosage: 150 MILLIGRAM, QD
     Route: 048
     Dates: start: 20240821
  2. QINLOCK [Suspect]
     Active Substance: RIPRETINIB
     Route: 048

REACTIONS (4)
  - Gastrointestinal disorder [Unknown]
  - Increased tendency to bruise [Unknown]
  - Alopecia [Unknown]
  - Inappropriate schedule of product administration [Unknown]
